FAERS Safety Report 10049490 (Version 1)
Quarter: 2014Q2

REPORT INFORMATION
  Report Type: Spontaneous
  Country: US (occurrence: US)
  Receive Date: 20140401
  Receipt Date: 20140401
  Transmission Date: 20141212
  Serious: Yes (Other)
  Sender: FDA-Public Use
  Company Number: US-009507513-1403USA014048

PATIENT
  Sex: Female

DRUGS (1)
  1. REMERON [Suspect]
     Dosage: UNK
     Route: 048

REACTIONS (1)
  - Alanine aminotransferase increased [Recovered/Resolved]
